FAERS Safety Report 5811864-9 (Version None)
Quarter: 2008Q3

REPORT INFORMATION
  Report Type: 
  Country: None (occurrence: None)
  Receive Date: 20080716
  Receipt Date: 20080707
  Transmission Date: 20090109
  Serious: Yes (Other)
  Sender: FDA-Public Use
  Company Number: US-BAYER-200821256GPV

PATIENT
  Age: 51 Year
  Sex: Female

DRUGS (3)
  1. SORAFENIB [Suspect]
     Indication: METASTATIC RENAL CELL CARCINOMA
     Route: 048
  2. SORAFENIB [Suspect]
     Route: 048
  3. SORAFENIB [Suspect]
     Route: 048

REACTIONS (2)
  - GAIT DISTURBANCE [None]
  - HYPERKERATOSIS PALMARIS AND PLANTARIS [None]
